FAERS Safety Report 21049922 (Version 2)
Quarter: 2022Q3

REPORT INFORMATION
  Report Type: Report from Study
  Country: US (occurrence: US)
  Receive Date: 20220706
  Receipt Date: 20220902
  Transmission Date: 20221027
  Serious: Yes (Other)
  Sender: FDA-Public Use
  Company Number: US-JAZZ-2022-US-022534

PATIENT
  Sex: Female

DRUGS (15)
  1. XYREM [Suspect]
     Active Substance: SODIUM OXYBATE
     Indication: Narcolepsy
     Dosage: UNK
  2. CROMOLYN SODIUM [Concomitant]
     Active Substance: CROMOLYN SODIUM
     Indication: Product used for unknown indication
     Dosage: 100 MG/5 ML ORAL CONC
     Dates: start: 20190701
  3. VITAMIN B12 [Concomitant]
     Active Substance: CYANOCOBALAMIN
     Indication: Product used for unknown indication
     Dosage: UNK
     Dates: start: 20191113
  4. CROMOLYN SODIUM [Concomitant]
     Active Substance: CROMOLYN SODIUM
     Indication: Product used for unknown indication
     Dosage: UNK
     Dates: start: 20200418
  5. GRAPE SEED EXTRACT [CITRUS AURANTIUM FRUIT;VITIS VINIFERA SEED] [Concomitant]
     Dosage: UNK
     Dates: start: 20191113
  6. GREEN TEA [CAMELLIA SINENSIS EXTRACT] [Concomitant]
     Indication: Product used for unknown indication
     Dosage: CAPLET
     Dates: start: 20191113
  7. PROGESTERONE [Concomitant]
     Active Substance: PROGESTERONE
     Indication: Product used for unknown indication
     Dosage: UNK
     Dates: start: 20191113
  8. HERBALS\SAW PALMETTO [Concomitant]
     Active Substance: HERBALS\SAW PALMETTO
     Indication: Product used for unknown indication
     Dosage: UNK
     Dates: start: 20191113
  9. TRETINOIN [Concomitant]
     Active Substance: TRETINOIN
     Dosage: UNK
     Dates: start: 20191113
  10. VITAMIN E [Concomitant]
     Active Substance: .ALPHA.-TOCOPHEROL
     Indication: Product used for unknown indication
     Dosage: UNK
     Dates: start: 20210701
  11. VITAMIN K [MENADIONE SODIUM BISULFITE] [Concomitant]
     Indication: Product used for unknown indication
     Dosage: UNK
     Dates: start: 20200701
  12. SELENIUM [Concomitant]
     Active Substance: SELENIUM
     Indication: Product used for unknown indication
     Dosage: UNK
     Dates: start: 20190101
  13. POTASSIUM CITRATE [Concomitant]
     Active Substance: POTASSIUM CITRATE
     Indication: Product used for unknown indication
     Dosage: ER 15 MEQ TB
     Dates: start: 20190701
  14. OXYBUTYNIN [Concomitant]
     Active Substance: OXYBUTYNIN
     Indication: Product used for unknown indication
     Dosage: UNK
     Dates: start: 20210729
  15. PHENYTOIN SODIUM [Concomitant]
     Active Substance: PHENYTOIN SODIUM
     Indication: Myoclonus
     Dosage: UNK
     Dates: start: 20220821

REACTIONS (4)
  - Chronic inflammatory demyelinating polyradiculoneuropathy [Unknown]
  - Postural orthostatic tachycardia syndrome [Unknown]
  - Ehlers-Danlos syndrome [Unknown]
  - Neuromyotonia [Unknown]
